FAERS Safety Report 9674870 (Version 2)
Quarter: 2013Q4

REPORT INFORMATION
  Report Type: Report from Study
  Country: JP (occurrence: JP)
  Receive Date: 20131107
  Receipt Date: 20131127
  Transmission Date: 20140711
  Serious: Yes (Hospitalization)
  Sender: FDA-Public Use
  Company Number: PHHY2013JP126284

PATIENT
  Age: 80 Year
  Sex: Male
  Weight: 45 kg

DRUGS (13)
  1. INDACATEROL [Suspect]
     Indication: CHRONIC OBSTRUCTIVE PULMONARY DISEASE
     Dosage: 150 UG, UNK
     Dates: start: 20130501
  2. INDACATEROL [Suspect]
     Dosage: UNK UKN, UNK
     Dates: start: 20130719, end: 20130719
  3. SPIRIVA [Concomitant]
     Indication: CHRONIC OBSTRUCTIVE PULMONARY DISEASE
     Dosage: 5 UG, UNK
     Dates: end: 20130719
  4. THEOLONG [Concomitant]
     Indication: CHRONIC OBSTRUCTIVE PULMONARY DISEASE
     Dosage: 300 MG, UNK
     Route: 048
     Dates: end: 20130719
  5. NEXIUM 1-2-3 [Concomitant]
     Indication: GASTROOESOPHAGEAL REFLUX DISEASE
     Dosage: 20 MG, UNK
     Route: 048
  6. HARNAL [Concomitant]
     Indication: BENIGN PROSTATIC HYPERPLASIA
     Dosage: 0.1 MG, UNK
     Route: 048
  7. FEBURIC [Concomitant]
     Indication: HYPERURICAEMIA
     Dosage: 10 MG, UNK
     Route: 048
  8. FERROMIA [Concomitant]
     Indication: IRON DEFICIENCY ANAEMIA
     Dosage: 100 MG, UNK
     Route: 048
  9. PREDOHAN [Concomitant]
     Indication: NEPHROTIC SYNDROME
     Dosage: 2.5 MG, UNK
     Route: 048
  10. PROMAC                                  /JPN/ [Concomitant]
     Indication: GASTRIC ULCER
     Dosage: 75 MG, UNK
     Route: 048
  11. POLARAMINE [Concomitant]
     Indication: ECZEMA
     Dosage: 4 MG, UNK
     Route: 048
  12. LENDORMIN [Concomitant]
     Indication: INSOMNIA
     Dosage: 0.3 MG, UNK
     Route: 048
  13. ROZEREM [Concomitant]
     Indication: INSOMNIA
     Dosage: 8 MG, UNK
     Route: 048

REACTIONS (3)
  - Dehydration [Recovering/Resolving]
  - Decreased appetite [Recovering/Resolving]
  - Prerenal failure [Recovering/Resolving]
